FAERS Safety Report 5328300-1 (Version None)
Quarter: 2007Q2

REPORT INFORMATION
  Report Type: 
  Country: None (occurrence: None)
  Receive Date: 20070515
  Receipt Date: 20070515
  Transmission Date: 20071010
  Serious: Yes (Hospitalization)
  Sender: FDA-Public Use
  Company Number: None

PATIENT
  Sex: Female
  Weight: 71.85 kg

DRUGS (5)
  1. CARBOPLATIN [Suspect]
     Dosage: 455 MG
  2. GLYBURIDE [Concomitant]
  3. LIPITOR [Concomitant]
  4. LISINOPRIL [Concomitant]
  5. ASPIRIN [Concomitant]

REACTIONS (10)
  - BLOOD BILIRUBIN ABNORMAL [None]
  - BLOOD BILIRUBIN INCREASED [None]
  - DIZZINESS [None]
  - HAEMOGLOBIN ABNORMAL [None]
  - HYPOGLYCAEMIA [None]
  - NAUSEA [None]
  - PLATELET COUNT ABNORMAL [None]
  - PYREXIA [None]
  - VOMITING [None]
  - WHITE BLOOD CELL COUNT ABNORMAL [None]
